FAERS Safety Report 23018008 (Version 2)
Quarter: 2023Q4

REPORT INFORMATION
  Report Type: Other
  Country: GB (occurrence: None)
  Receive Date: 20231003
  Receipt Date: 20231016
  Transmission Date: 20240110
  Serious: Yes (Other)
  Sender: FDA-Public Use
  Company Number: GB-ROCHE-3368901

PATIENT
  Age: 56 Year
  Sex: Female

DRUGS (9)
  1. TOCILIZUMAB [Suspect]
     Active Substance: TOCILIZUMAB
     Indication: Rheumatoid arthritis
     Route: 058
     Dates: start: 20230515, end: 20230529
  2. TOCILIZUMAB [Suspect]
     Active Substance: TOCILIZUMAB
     Route: 058
     Dates: start: 20230510, end: 20230529
  3. ETORICOXIB [Concomitant]
     Active Substance: ETORICOXIB
  4. LANSOPRAZOLE [Concomitant]
     Active Substance: LANSOPRAZOLE
  5. CODEINE [Concomitant]
     Active Substance: CODEINE
  6. OMEPRAZOLE [Concomitant]
     Active Substance: OMEPRAZOLE
     Indication: Abdominal pain upper
  7. IBUPROFEN [Concomitant]
     Active Substance: IBUPROFEN
     Indication: Abdominal pain upper
  8. METHOTREXATE [Concomitant]
     Active Substance: METHOTREXATE
     Indication: Rheumatoid arthritis
     Route: 048
  9. FOLIC ACID [Concomitant]
     Active Substance: FOLIC ACID
     Indication: Rheumatoid arthritis
     Route: 048

REACTIONS (7)
  - Abscess limb [Recovered/Resolved]
  - Arthropathy [Recovered/Resolved]
  - Malaise [Unknown]
  - Drug delivery system malfunction [Unknown]
  - Induration [Unknown]
  - Pain [Unknown]
  - Wound [Unknown]

NARRATIVE: CASE EVENT DATE: 20230524
